FAERS Safety Report 22162672 (Version 3)
Quarter: 2025Q3

REPORT INFORMATION
  Report Type: Spontaneous
  Country: US (occurrence: US)
  Receive Date: 20230331
  Receipt Date: 20250928
  Transmission Date: 20251020
  Serious: Yes (Other)
  Sender: JOHNSON AND JOHNSON
  Company Number: US-JNJFOC-20230357205

PATIENT
  Sex: Male
  Weight: 79.38 kg

DRUGS (1)
  1. ELMIRON [Suspect]
     Active Substance: PENTOSAN POLYSULFATE SODIUM
     Indication: Cystitis interstitial
     Route: 065

REACTIONS (4)
  - Age-related macular degeneration [Unknown]
  - Blindness [Unknown]
  - Maculopathy [Unknown]
  - Product label issue [Unknown]
